FAERS Safety Report 17925861 (Version 1)
Quarter: 2020Q2

REPORT INFORMATION
  Report Type: Spontaneous
  Country: DE (occurrence: DE)
  Receive Date: 20200622
  Receipt Date: 20200622
  Transmission Date: 20200714
  Serious: Yes (Hospitalization)
  Sender: FDA-Public Use
  Company Number: DE-TEVA-2020-DE-1789093

PATIENT
  Age: 80 Year
  Sex: Female

DRUGS (12)
  1. ESOMEPRAZOL [Concomitant]
     Active Substance: ESOMEPRAZOLE
     Dosage: 40 MILLIGRAM DAILY;  1-0-0-0,
     Route: 048
  2. MORPHIN [Suspect]
     Active Substance: MORPHINE
     Dosage: 10 MILLIGRAM DAILY;  1-0-0-0,
     Route: 048
  3. MOVICOL [Concomitant]
     Active Substance: POLYETHYLENE GLYCOL 3350\POTASSIUM CHLORIDE\SODIUM BICARBONATE\SODIUM CHLORIDE
     Dosage: 1 DOSAGE FORMS DAILY; NK MG, 1-0-0-0
     Route: 048
  4. PRAMIPEXOL [Suspect]
     Active Substance: PRAMIPEXOLE
     Dosage: 3 DOSAGE FORMS DAILY; 0.088 MG, 0-0-3-0,
     Route: 048
  5. LEVOFLOXACIN. [Suspect]
     Active Substance: LEVOFLOXACIN
     Dosage: 500 MILLIGRAM DAILY;  0-1-0-0,
     Route: 048
  6. MORPHIN [Suspect]
     Active Substance: MORPHINE
     Dosage: 30 MILLIGRAM DAILY;  0-0-1-0,
  7. GABAPENTIN. [Concomitant]
     Active Substance: GABAPENTIN
     Dosage: 2 DOSAGE FORMS DAILY; 100 MG, 2-0-0-0,
     Route: 048
  8. GABAPENTIN. [Concomitant]
     Active Substance: GABAPENTIN
     Dosage: 2.5 MG, 1-0-0-0, TABLETTEN
  9. EFEROX 125 MIKROGRAMM [Concomitant]
     Dosage: 125 MICROGRAM DAILY; 1-0-0-0,
     Route: 048
  10. LAXANS AL [Concomitant]
     Dosage: 18 GTT DAILY; NK MG, 0-0-0-18,DROPS
     Route: 048
  11. ACETYLSALICYLSAURE [Concomitant]
     Active Substance: ASPIRIN
     Dosage: 100 MILLIGRAM DAILY; 0-1-0-0,
     Route: 048
  12. METAMIZOL [Concomitant]
     Active Substance: METAMIZOLE SODIUM
     Dosage: 500 MG, 1-1-2-0,
     Route: 048

REACTIONS (3)
  - Constipation [Unknown]
  - Abdominal pain [Unknown]
  - Vomiting [Unknown]
